FAERS Safety Report 17699934 (Version 1)
Quarter: 2020Q2

REPORT INFORMATION
  Report Type: Spontaneous
  Country: US (occurrence: US)
  Receive Date: 20200423
  Receipt Date: 20200423
  Transmission Date: 20200714
  Serious: Yes (Other)
  Sender: FDA-Public Use
  Company Number: US-ASTELLAS-2019US018632

PATIENT
  Age: 41 Year
  Sex: Male

DRUGS (4)
  1. LEXISCAN [Suspect]
     Active Substance: REGADENOSON
     Indication: CARDIAC STRESS TEST
     Dosage: 4 ML, OTHER ONE TIME INJECTION VIA RAC IV LINE
     Route: 042
     Dates: start: 20190426, end: 20190426
  2. LEXISCAN [Suspect]
     Active Substance: REGADENOSON
     Indication: CARDIAC STRESS TEST
     Dosage: 4 ML, OTHER ONE TIME INJECTION VIA RAC IV LINE
     Route: 042
     Dates: start: 20190426, end: 20190426
  3. LEXISCAN [Suspect]
     Active Substance: REGADENOSON
     Indication: CARDIAC STRESS TEST
     Dosage: 4 ML, OTHER ONE TIME INJECTION VIA RAC IV LINE
     Route: 042
     Dates: start: 20190426, end: 20190426
  4. LEXISCAN [Suspect]
     Active Substance: REGADENOSON
     Indication: CARDIAC STRESS TEST
     Dosage: 4 ML, OTHER ONE TIME INJECTION VIA RAC IV LINE
     Route: 042
     Dates: start: 20190426, end: 20190426

REACTIONS (2)
  - Cardiac arrest [Recovered/Resolved]
  - Loss of consciousness [Recovered/Resolved]

NARRATIVE: CASE EVENT DATE: 20190426
